FAERS Safety Report 10312758 (Version 1)
Quarter: 2014Q3

REPORT INFORMATION
  Report Type: Spontaneous
  Country: US (occurrence: None)
  Receive Date: 20140717
  Receipt Date: 20140717
  Transmission Date: 20150326
  Serious: Yes (Hospitalization, Other)
  Sender: FDA-Public Use
  Company Number: None

PATIENT
  Age: 15 Year
  Sex: Female
  Weight: 51.71 kg

DRUGS (1)
  1. TRIMETHOPRIM-SULFAMETHOXAZOLE [Suspect]
     Active Substance: SULFAMETHOXAZOLE\TRIMETHOPRIM
     Indication: LOCALISED INFECTION
     Dosage: 1 PILL, TWICE DAILY, TAKEN BY MOUTH
     Route: 048
     Dates: start: 20140703, end: 20140713

REACTIONS (14)
  - Headache [None]
  - Fatigue [None]
  - Insomnia [None]
  - Sunburn [None]
  - Pyrexia [None]
  - Tremor [None]
  - Chills [None]
  - Lip swelling [None]
  - Pain [None]
  - Decreased appetite [None]
  - Generalised erythema [None]
  - Stevens-Johnson syndrome [None]
  - Urticaria [None]
  - Swelling face [None]

NARRATIVE: CASE EVENT DATE: 20140713
